FAERS Safety Report 20042025 (Version 2)
Quarter: 2022Q1

REPORT INFORMATION
  Report Type: Report from Study
  Country: US (occurrence: US)
  Receive Date: 20211108
  Receipt Date: 20220103
  Transmission Date: 20220423
  Serious: No
  Sender: FDA-Public Use
  Company Number: US-BIOVITRUM-2021US9938

PATIENT
  Age: 72 Year
  Sex: Female

DRUGS (2)
  1. KINERET [Suspect]
     Active Substance: ANAKINRA
     Indication: Rheumatoid arthritis
     Route: 058
     Dates: start: 20200928
  2. KINERET [Suspect]
     Active Substance: ANAKINRA
     Dosage: ACCIDENTALLY TOOK HER KINERET 100MG INJECTION THAT MORNING TWICE
     Dates: start: 20211229

REACTIONS (8)
  - Nasopharyngitis [Unknown]
  - Intervertebral disc protrusion [Unknown]
  - Foot deformity [Unknown]
  - Gait disturbance [Unknown]
  - Fall [Unknown]
  - Insomnia [Unknown]
  - Memory impairment [Unknown]
  - Intentional product misuse [Unknown]

NARRATIVE: CASE EVENT DATE: 20211229
